FAERS Safety Report 12921275 (Version 1)
Quarter: 2016Q4

REPORT INFORMATION
  Report Type: Spontaneous
  Country: US (occurrence: US)
  Receive Date: 20161107
  Receipt Date: 20161107
  Transmission Date: 20170207
  Serious: Yes (Hospitalization)
  Sender: FDA-Public Use
  Company Number: US-MALLINCKRODT-T201605550

PATIENT
  Age: 52 Year
  Sex: Male

DRUGS (37)
  1. GABLOFEN [Suspect]
     Active Substance: BACLOFEN
     Dosage: 580 ?G, QD
     Route: 037
     Dates: start: 20161011
  2. CALCIUM [Concomitant]
     Active Substance: CALCIUM
     Dosage: 1.5 G, BID
     Route: 048
  3. ATORVASTATIN [Concomitant]
     Active Substance: ATORVASTATIN
     Dosage: 40 MG, QD
  4. PREGABALIN. [Concomitant]
     Active Substance: PREGABALIN
     Dosage: 150 MG, BID
     Route: 048
  5. GABLOFEN [Suspect]
     Active Substance: BACLOFEN
     Dosage: 850 ?G, QD
     Route: 037
     Dates: start: 201512, end: 20151222
  6. GLUTAMINE [Concomitant]
     Active Substance: GLUTAMINE
     Dosage: 7 G, BID
     Route: 048
  7. ASPIRIN 81 [Concomitant]
     Active Substance: ASPIRIN
     Dosage: 81 MG, QD
     Route: 048
  8. CITALOPRAM [Concomitant]
     Active Substance: CITALOPRAM HYDROBROMIDE
     Dosage: 20 MG, QD
     Route: 048
  9. LEVOTHYROXINE SODIUM. [Concomitant]
     Active Substance: LEVOTHYROXINE SODIUM
     Dosage: 187.5 ?G, QD
     Route: 048
  10. MINERAL [Concomitant]
     Dosage: 300 ?G, QD
  11. LUTEIN [Concomitant]
     Active Substance: LUTEIN
     Dosage: 250 ?G, QD
  12. POLYETHYLENE GLYCOL [Concomitant]
     Active Substance: POLYETHYLENE GLYCOLS
     Dosage: 17 G, AT NIGHT EVERY MONDAY, WEDNESDAY, FRIDAY
     Route: 048
  13. SENNOSIDES A+B [Concomitant]
     Active Substance: SENNOSIDES A AND B
     Dosage: 8.6 MG, QD
  14. GABLOFEN [Suspect]
     Active Substance: BACLOFEN
     Dosage: 840 ?G, QD
     Route: 037
     Dates: start: 20160525, end: 20160917
  15. ALBUTEROL. [Concomitant]
     Active Substance: ALBUTEROL
     Dosage: 2.5 MG, EVERY 4 HRS
  16. NITROGLYCERIN. [Concomitant]
     Active Substance: NITROGLYCERIN
     Dosage: 0.4 MG, 1 EVERY 5 MIN IF NEEDED
     Route: 060
  17. GABLOFEN [Suspect]
     Active Substance: BACLOFEN
     Dosage: 800 ?G, QD
     Route: 037
     Dates: start: 20151223, end: 20160514
  18. GABLOFEN [Suspect]
     Active Substance: BACLOFEN
     Dosage: 800 ?G, QD
     Route: 037
     Dates: start: 20160919, end: 20161010
  19. BACLOFEN. [Concomitant]
     Active Substance: BACLOFEN
     Dosage: 20 MG, 4 TIME A DAY
     Route: 048
  20. BISACODYL. [Concomitant]
     Active Substance: BISACODYL
     Dosage: 5 MG, EVERY MONDAY, WEDNESDAY, FRIDAY
     Route: 048
  21. MULTIVITAMIN [Concomitant]
     Active Substance: VITAMINS
     Dosage: 0.4 MG, QD
  22. GABLOFEN [Suspect]
     Active Substance: BACLOFEN
     Dosage: 890 ?G, QD
     Route: 037
     Dates: start: 20160918, end: 20160918
  23. ACETAMINOPHEN. [Concomitant]
     Active Substance: ACETAMINOPHEN
     Dosage: 325 MG, BID, EVERY 4 HRS IF NEEDED
     Route: 048
  24. BISACODYL. [Concomitant]
     Active Substance: BISACODYL
     Dosage: 10 MG, EVERY MONDAY, WEDNESDAY, FRIDAY
     Route: 054
  25. CALCIUM CARBONATE. [Concomitant]
     Active Substance: CALCIUM CARBONATE
     Dosage: 500 MG, EVERY 4 HRS
     Route: 048
  26. LACTULOSE. [Concomitant]
     Active Substance: LACTULOSE
     Dosage: 10G/15ML, QD
     Route: 048
  27. OXYCODONE [Concomitant]
     Active Substance: OXYCODONE
     Dosage: 15 MG EVERY 4 HRS
     Route: 048
  28. CHOLECALCIFEROL [Concomitant]
     Active Substance: CHOLECALCIFEROL
     Dosage: 1000 IU, QD
     Route: 048
  29. DOCUSATE [Concomitant]
     Active Substance: DOCUSATE
     Dosage: 100 MG, QD
     Route: 048
  30. NORTRIPTYLINE [Concomitant]
     Active Substance: NORTRIPTYLINE
     Dosage: 30 MG EVERY NIGHT
     Route: 048
  31. VITAMIN C [Concomitant]
     Active Substance: ASCORBIC ACID
     Dosage: 500 MG, BID
  32. GABLOFEN [Suspect]
     Active Substance: BACLOFEN
     Indication: MUSCLE SPASTICITY
     Dosage: 649.9 ?G, QD
     Route: 037
  33. GABLOFEN [Suspect]
     Active Substance: BACLOFEN
     Dosage: 578 ?G, QD
     Route: 037
  34. ALBUTEROL SULFATE AND IPRATROPIUM BROMIDE [Concomitant]
     Active Substance: ALBUTEROL SULFATE\IPRATROPIUM BROMIDE
     Dosage: 2.5-0.5 MG IN 3ML NEBULATION SOLUTION, EVERY 4 HRS
  35. ARGININE [Concomitant]
     Active Substance: ARGININE
     Dosage: 7 G, BID
     Route: 048
  36. BISACODYL. [Concomitant]
     Active Substance: BISACODYL
     Dosage: 5 MG, QD
     Route: 048
  37. OXYCODONE [Concomitant]
     Active Substance: OXYCODONE
     Dosage: 20 MG, TID
     Route: 048

REACTIONS (7)
  - Device issue [Unknown]
  - Nephrolithiasis [Unknown]
  - Muscle spasticity [Unknown]
  - Hypertonia [Unknown]
  - Joint range of motion decreased [Unknown]
  - Pneumonia aspiration [Unknown]
  - Urinary tract infection [Unknown]

NARRATIVE: CASE EVENT DATE: 20160525
